FAERS Safety Report 16843822 (Version 2)
Quarter: 2023Q2

REPORT INFORMATION
  Report Type: Spontaneous
  Country: US (occurrence: US)
  Receive Date: 20190924
  Receipt Date: 20230505
  Transmission Date: 20230722
  Serious: Yes (Death, Other)
  Sender: FDA-Public Use
  Company Number: US-GILEAD-2019-0429585

PATIENT
  Age: 61 Year
  Sex: Male

DRUGS (32)
  1. VIREAD [Suspect]
     Active Substance: TENOFOVIR DISOPROXIL FUMARATE
     Indication: HIV infection
     Dosage: UNK
     Route: 048
     Dates: start: 20090822, end: 20141017
  2. VIREAD [Suspect]
     Active Substance: TENOFOVIR DISOPROXIL FUMARATE
     Dosage: UNK
     Route: 048
     Dates: start: 200806, end: 20141017
  3. TRUVADA [Suspect]
     Active Substance: EMTRICITABINE\TENOFOVIR DISOPROXIL FUMARATE
     Indication: HIV infection
     Dosage: UNK
     Route: 048
     Dates: start: 20150204, end: 20151230
  4. TRUVADA [Suspect]
     Active Substance: EMTRICITABINE\TENOFOVIR DISOPROXIL FUMARATE
     Dosage: UNK
     Route: 048
     Dates: start: 20180213, end: 20180312
  5. TRUVADA [Suspect]
     Active Substance: EMTRICITABINE\TENOFOVIR DISOPROXIL FUMARATE
     Dosage: UNK
     Route: 048
     Dates: start: 20150204, end: 201611
  6. DESCOVY [Concomitant]
     Active Substance: EMTRICITABINE\TENOFOVIR ALAFENAMIDE FUMARATE
  7. EPIVIR [Concomitant]
     Active Substance: LAMIVUDINE
  8. ISENTRESS [Concomitant]
     Active Substance: RALTEGRAVIR POTASSIUM
  9. SUSTIVA [Concomitant]
     Active Substance: EFAVIRENZ
  10. ACYCLOVIR [Concomitant]
     Active Substance: ACYCLOVIR
  11. AMOXICILLIN [Concomitant]
     Active Substance: AMOXICILLIN
  12. BUSPIRONE [Concomitant]
     Active Substance: BUSPIRONE HYDROCHLORIDE
  13. CEFADROXIL [Concomitant]
     Active Substance: CEFADROXIL
  14. CIPROFLOXACIN [Concomitant]
     Active Substance: CIPROFLOXACIN
  15. CYCLOBENZAPRINE [Concomitant]
     Active Substance: CYCLOBENZAPRINE
  16. DOXYCYCLINE [Concomitant]
     Active Substance: DOXYCYCLINE
  17. GABAPENTIN [Concomitant]
     Active Substance: GABAPENTIN
  18. HARVONI [Concomitant]
     Active Substance: LEDIPASVIR\SOFOSBUVIR
  19. IBUPROFEN [Concomitant]
     Active Substance: IBUPROFEN
  20. ISENTRESS [Concomitant]
     Active Substance: RALTEGRAVIR POTASSIUM
  21. LAMIVUDINE [Concomitant]
     Active Substance: LAMIVUDINE
  22. LISINOPRIL [Concomitant]
     Active Substance: LISINOPRIL
  23. MELOXICAM [Concomitant]
     Active Substance: MELOXICAM
  24. OXYCODONE AND ACETAMINOPHEN [Concomitant]
     Active Substance: ACETAMINOPHEN\OXYCODONE HYDROCHLORIDE
  25. ACETAMINOPHEN\OXYCODONE HYDROCHLORIDE\OXYCODONE TEREPHTHALATE [Concomitant]
     Active Substance: ACETAMINOPHEN\OXYCODONE HYDROCHLORIDE\OXYCODONE TEREPHTHALATE
  26. PROAIR HFA [Concomitant]
     Active Substance: ALBUTEROL SULFATE
  27. SULFAMETHOXAZOLE\TRIMETHOPRIM [Concomitant]
     Active Substance: SULFAMETHOXAZOLE\TRIMETHOPRIM
  28. TIZANIDINE [Concomitant]
     Active Substance: TIZANIDINE
  29. TRAMADOL [Concomitant]
     Active Substance: TRAMADOL
  30. TRAZODONE [Concomitant]
     Active Substance: TRAZODONE HYDROCHLORIDE
  31. VIAGRA [Concomitant]
     Active Substance: SILDENAFIL CITRATE
  32. MOBIC [Concomitant]
     Active Substance: MELOXICAM

REACTIONS (11)
  - Death [Fatal]
  - Chronic kidney disease [Recovered/Resolved]
  - Multiple injuries [Unknown]
  - Loss of personal independence in daily activities [Unknown]
  - Quality of life decreased [Not Recovered/Not Resolved]
  - Decreased activity [Not Recovered/Not Resolved]
  - Economic problem [Unknown]
  - Anhedonia [Not Recovered/Not Resolved]
  - Emotional distress [Not Recovered/Not Resolved]
  - Anxiety [Not Recovered/Not Resolved]
  - Depression [Unknown]

NARRATIVE: CASE EVENT DATE: 20161101
